FAERS Safety Report 8578575-0 (Version None)
Quarter: 2012Q3

REPORT INFORMATION
  Report Type: 
  Country: None (occurrence: None)
  Receive Date: 20120808
  Receipt Date: 20120731
  Transmission Date: 20120928
  Serious: Yes (Life-Threatening, Hospitalization)
  Sender: FDA-Public Use
  Company Number: JP-BRISTOL-MYERS SQUIBB COMPANY-14644215

PATIENT
  Age: 73 Year
  Sex: Male
  Weight: 63 kg

DRUGS (9)
  1. METHYLCOBALAMIN [Concomitant]
     Route: 048
     Dates: end: 20090402
  2. MAXIPIME [Concomitant]
     Route: 041
  3. FUNGUARD [Concomitant]
     Route: 065
  4. POLARAMINE [Concomitant]
     Route: 065
  5. SPRYCEL [Suspect]
     Indication: CHRONIC MYELOID LEUKAEMIA
     Dosage: 01APR2009-02APR2009:(2 DAYS) 24APR2009-15MAY2009: (21 DAYS)
     Route: 048
     Dates: start: 20090401, end: 20090515
  6. IMIPENEM AND CILASTATIN [Concomitant]
     Dosage: INJ
     Route: 042
     Dates: start: 20090401, end: 20090407
  7. NEO-MINOPHAGEN C [Concomitant]
     Dosage: INJ
     Route: 042
     Dates: start: 20090513, end: 20090530
  8. SOLU-MEDROL [Concomitant]
     Route: 065
  9. ALLOPURINOL [Concomitant]
     Route: 048
     Dates: end: 20090402

REACTIONS (11)
  - PRURITUS [None]
  - PLEURAL EFFUSION [None]
  - LIVER DISORDER [None]
  - ANAEMIA [None]
  - PYREXIA [None]
  - INTERSTITIAL LUNG DISEASE [None]
  - ILEUS [None]
  - DECREASED APPETITE [None]
  - MALAISE [None]
  - WHITE BLOOD CELL COUNT DECREASED [None]
  - PLATELET COUNT DECREASED [None]
